APPROVED DRUG PRODUCT: OFLOXACIN
Active Ingredient: OFLOXACIN
Strength: 0.3%
Dosage Form/Route: SOLUTION/DROPS;OPHTHALMIC
Application: A076830 | Product #001
Applicant: ALVOGEN INC
Approved: Aug 31, 2004 | RLD: No | RS: No | Type: DISCN